FAERS Safety Report 16766732 (Version 3)
Quarter: 2020Q4

REPORT INFORMATION
  Report Type: Spontaneous
  Country: US (occurrence: US)
  Receive Date: 20190903
  Receipt Date: 20201023
  Transmission Date: 20210113
  Serious: No
  Sender: FDA-Public Use
  Company Number: US-PFIZER INC-2019352098

PATIENT
  Age: 51 Year
  Sex: Female

DRUGS (1)
  1. PREMARIN [Suspect]
     Active Substance: ESTROGENS, CONJUGATED
     Indication: MENOPAUSE
     Dosage: 1 G, ONCE A DAY IN THE EVENING, 21 DAYS
     Route: 067

REACTIONS (2)
  - Malaise [Unknown]
  - Off label use [Unknown]
